FAERS Safety Report 7816005-4 (Version None)
Quarter: 2011Q4

REPORT INFORMATION
  Report Type: 
  Country: None (occurrence: None)
  Receive Date: 20111014
  Receipt Date: 20110923
  Transmission Date: 20120403
  Serious: Yes (Hospitalization)
  Sender: FDA-Public Use
  Company Number: FR-ROCHE-1000238

PATIENT
  Age: 73 Year
  Sex: Female

DRUGS (11)
  1. MEPROBAMATE [Concomitant]
  2. LEVOTHYROXINE SODIUM [Concomitant]
  3. ANAFRANIL [Concomitant]
  4. MORPHINE SULFATE [Concomitant]
  5. MYCOPHENOLATE MOFETIL (CELLCEPT) [Suspect]
     Indication: PROPHYLAXIS AGAINST TRANSPLANT REJECTION
     Route: 048
     Dates: start: 20070101
  6. NEORAL [Suspect]
     Indication: PROPHYLAXIS AGAINST TRANSPLANT REJECTION
     Route: 048
     Dates: start: 20070101
  7. ATORVASTATIN CALCIUM [Concomitant]
  8. NEXIUM [Concomitant]
  9. CALCIDIA [Concomitant]
  10. ZYPREXA [Concomitant]
  11. ASPIRIN [Concomitant]

REACTIONS (1)
  - MALIGNANT PERITONEAL NEOPLASM [None]
